FAERS Safety Report 17286663 (Version 2)
Quarter: 2020Q3

REPORT INFORMATION
  Report Type: Report from Study
  Country: TW (occurrence: TW)
  Receive Date: 20200119
  Receipt Date: 20200214
  Transmission Date: 20201104
  Serious: Yes (Hospitalization)
  Sender: FDA-Public Use
  Company Number: TW-ALEXION PHARMACEUTICALS INC.-A202000271

PATIENT
  Age: 67 Year
  Sex: Female
  Weight: 45 kg

DRUGS (164)
  1. RAVULIZUMAB. [Suspect]
     Active Substance: RAVULIZUMAB
     Dosage: 3000 MG, UNK
     Route: 042
     Dates: start: 20190924
  2. BENIDIPINE [Concomitant]
     Active Substance: BENIDIPINE
     Indication: HYPERTENSION
     Dosage: 4 MG, BID
     Route: 048
     Dates: start: 20190320, end: 20191111
  3. CALCIUM POLYSTYRENE SULFONATE [Concomitant]
     Active Substance: CALCIUM POLYSTYRENE SULFONATE
     Dosage: 5 G, QID
     Route: 048
     Dates: start: 20191125, end: 20191125
  4. CALCIUM POLYSTYRENE SULFONATE [Concomitant]
     Active Substance: CALCIUM POLYSTYRENE SULFONATE
     Dosage: 5 G, QD
     Route: 048
     Dates: start: 20191126, end: 20191201
  5. HYDRALAZINE [Concomitant]
     Active Substance: HYDRALAZINE HYDROCHLORIDE
     Dosage: 25 MG, QID
     Route: 048
     Dates: start: 20191120, end: 20191124
  6. HYDROXYCHLOROQUINE [Concomitant]
     Active Substance: HYDROXYCHLOROQUINE
     Indication: SJOGREN^S SYNDROME
     Dosage: 200 MG, QD
     Route: 048
     Dates: start: 20190924
  7. ACETAMINOPHEN. [Concomitant]
     Active Substance: ACETAMINOPHEN
     Dosage: 500 MG, Q6H (PRN)
     Route: 048
     Dates: start: 20191122, end: 20191204
  8. ACETYLCYSTEINE. [Concomitant]
     Active Substance: ACETYLCYSTEINE
     Dosage: 600 MG, QD
     Route: 048
     Dates: start: 20191217
  9. CARVEDILOL. [Concomitant]
     Active Substance: CARVEDILOL
     Indication: HYPERTENSION
     Dosage: 25 MG, BID
     Route: 048
     Dates: start: 20191022, end: 20191211
  10. CALCIUM ACETATE. [Concomitant]
     Active Substance: CALCIUM ACETATE
     Dosage: 1334 MG, TID
     Route: 048
     Dates: start: 20191105, end: 20191211
  11. NYSTATIN. [Concomitant]
     Active Substance: NYSTATIN
     Indication: PROPHYLAXIS
     Dosage: 500000 UNITS, TID
     Route: 048
     Dates: start: 20191024, end: 20191031
  12. SENNOSIDES A+B [Concomitant]
     Active Substance: SENNOSIDES A AND B
     Dosage: 40 MG, QD
     Route: 048
     Dates: start: 20191202, end: 20191202
  13. CODEINE PHOSPHATE [Concomitant]
     Active Substance: CODEINE PHOSPHATE
     Indication: COUGH
     Dosage: 60 MG, Q6H (PRN)
     Route: 048
     Dates: start: 20191105, end: 20191108
  14. NEOMYCIN. [Concomitant]
     Active Substance: NEOMYCIN
     Indication: DERMATITIS BULLOUS
     Dosage: 1 G, BID
     Route: 061
     Dates: start: 20191105, end: 20191108
  15. CHLORPHENIRAMINE                   /00072501/ [Concomitant]
     Active Substance: CHLORPHENIRAMINE
     Dosage: 10 MG, QD
     Route: 042
     Dates: start: 20191108, end: 20191108
  16. ZOPICLONE [Concomitant]
     Active Substance: ZOPICLONE
     Indication: INSOMNIA
     Dosage: 15 MG, QD
     Route: 048
     Dates: start: 20191107, end: 20191107
  17. VALSARTAN. [Concomitant]
     Active Substance: VALSARTAN
     Indication: HYPERTENSION
     Dosage: 80 MG, QD
     Route: 048
     Dates: start: 20191112, end: 20191113
  18. TELMISARTAN. [Concomitant]
     Active Substance: TELMISARTAN
     Indication: HYPERTENSION
     Dosage: 80 MG, QD
     Route: 048
     Dates: start: 20191113, end: 20191117
  19. HALOPERIDOL. [Concomitant]
     Active Substance: HALOPERIDOL
     Dosage: 2.5 MG, SINGLE
     Route: 030
     Dates: start: 20191119, end: 20191119
  20. RISPERIDONE. [Concomitant]
     Active Substance: RISPERIDONE
     Dosage: 0.5 MG, QD
     Route: 048
     Dates: start: 20191122, end: 20191125
  21. HEPARIN [Concomitant]
     Active Substance: HEPARIN SODIUM
     Dosage: 2500 IU, SINGLE
     Route: 042
     Dates: start: 20191126, end: 20191126
  22. LORAZEPAM. [Concomitant]
     Active Substance: LORAZEPAM
     Dosage: 0.25 MG, SINGLE
     Route: 048
     Dates: start: 20191201, end: 20191201
  23. UNASYN [Concomitant]
     Active Substance: AMPICILLIN SODIUM\SULBACTAM SODIUM
     Indication: PNEUMONIA
     Dosage: 1500 MG, QD
     Route: 042
     Dates: start: 20191127, end: 20191202
  24. BENIDIPINE [Concomitant]
     Active Substance: BENIDIPINE
     Dosage: 4 MG, BID
     Route: 048
     Dates: start: 20191113, end: 20191211
  25. DOXAZOSIN [Concomitant]
     Active Substance: DOXAZOSIN MESYLATE
     Indication: HYPERTENSION
     Dosage: 2 MG, QD
     Route: 048
     Dates: start: 20191015, end: 20191028
  26. ESOMEPRAZOLE. [Concomitant]
     Active Substance: ESOMEPRAZOLE MAGNESIUM
     Indication: GASTRIC HAEMORRHAGE
     Dosage: 40 MG, QID
     Route: 042
     Dates: start: 20191109, end: 20191114
  27. FOLIC ACID. [Concomitant]
     Active Substance: FOLIC ACID
     Indication: END STAGE RENAL DISEASE
     Dosage: 5 MG, QD
     Route: 048
     Dates: start: 20191015
  28. COMBIVENT [Concomitant]
     Active Substance: ALBUTEROL SULFATE\IPRATROPIUM BROMIDE
     Dosage: 2.5 ML, TID
     Route: 055
     Dates: start: 20191030, end: 20191106
  29. ULTRACET [Concomitant]
     Active Substance: ACETAMINOPHEN\TRAMADOL HYDROCHLORIDE
     Indication: CHOLECYSTITIS
     Dosage: 1 UNK, BID
     Route: 048
     Dates: start: 20191022, end: 20191029
  30. MIDODRINE [Concomitant]
     Active Substance: MIDODRINE
     Dosage: 10 MG, SINGLE
     Route: 048
     Dates: start: 20191125, end: 20191125
  31. BROWN MIXTURE                      /01682301/ [Concomitant]
     Dosage: 5 ML, TID
     Route: 048
     Dates: start: 20191217, end: 20191224
  32. GABAPENTIN. [Concomitant]
     Active Substance: GABAPENTIN
     Indication: DERMATITIS BULLOUS
     Dosage: 300 MG, SINGLE
     Route: 048
     Dates: start: 20191106, end: 20191106
  33. CHLORPHENIRAMINE                   /00072501/ [Concomitant]
     Active Substance: CHLORPHENIRAMINE
     Dosage: 5 MG, QD
     Route: 042
     Dates: start: 20191126, end: 20191128
  34. TRANEXAMIC [Concomitant]
     Active Substance: TRANEXAMIC ACID
     Indication: GASTRIC HAEMORRHAGE
     Dosage: 250 MG, SINGLE
     Route: 042
     Dates: start: 20191108, end: 20191108
  35. TRANSAMIN [Concomitant]
     Active Substance: TRANEXAMIC ACID
     Indication: GASTRIC HAEMORRHAGE
     Dosage: 125 MG, BID
     Route: 042
     Dates: start: 20191108, end: 20191108
  36. TRANSAMIN [Concomitant]
     Active Substance: TRANEXAMIC ACID
     Dosage: 250 MG, BID
     Route: 048
     Dates: start: 20191109, end: 20191111
  37. VANCOMYCIN [Concomitant]
     Active Substance: VANCOMYCIN
     Indication: PNEUMONIA
     Dosage: 1000 MG, SINGLE
     Route: 042
     Dates: start: 20191109, end: 20191109
  38. VITAMIN B1 [Concomitant]
     Active Substance: THIAMINE HYDROCHLORIDE
     Dosage: 100 MG, BID
     Route: 042
     Dates: start: 20191110, end: 20191119
  39. VITAMIN C [Concomitant]
     Active Substance: ASCORBIC ACID
     Dosage: 100 MG, QD
     Route: 042
     Dates: start: 20191120, end: 20191121
  40. CALCIUM GLUCONATE. [Concomitant]
     Active Substance: CALCIUM GLUCONATE
     Indication: SUPPLEMENTATION THERAPY
     Dosage: 10 ML, QD
     Route: 042
     Dates: start: 20191116, end: 20191117
  41. DEXTROSE. [Concomitant]
     Active Substance: DEXTROSE
     Dosage: 80 ML, QID
     Route: 042
     Dates: start: 20191125, end: 20191202
  42. CLONIDINE. [Concomitant]
     Active Substance: CLONIDINE
     Indication: HYPERTENSION
     Dosage: 75 ?G, TID
     Route: 048
     Dates: start: 20191127, end: 20191211
  43. PANTOPRAZOLE [Concomitant]
     Active Substance: PANTOPRAZOLE
     Indication: GASTRIC ULCER
     Dosage: 40 MG, QD
     Route: 048
     Dates: start: 20191217
  44. CALCIUM POLYSTYRENE SULFONATE [Concomitant]
     Active Substance: CALCIUM POLYSTYRENE SULFONATE
     Dosage: 5 G, QD
     Route: 048
     Dates: start: 20191217
  45. DOXAZOSIN [Concomitant]
     Active Substance: DOXAZOSIN MESYLATE
     Dosage: 2 MG, QD
     Route: 048
     Dates: start: 20191108, end: 20191112
  46. MIDODRINE [Concomitant]
     Active Substance: MIDODRINE
     Dosage: 20 MG, QD
     Route: 048
     Dates: start: 20191116, end: 20191116
  47. CEFUROXIME. [Concomitant]
     Active Substance: CEFUROXIME
     Indication: PNEUMONIA
     Dosage: 1500 MG, QD
     Route: 042
     Dates: start: 20191025, end: 20191031
  48. CLOPIDOGREL [Concomitant]
     Active Substance: CLOPIDOGREL BISULFATE
     Indication: MYOCARDIAL ISCHAEMIA
     Dosage: 75 MG, QD
     Route: 048
     Dates: start: 20191105, end: 20191119
  49. ISOSORBIDE MONONITRATE. [Concomitant]
     Active Substance: ISOSORBIDE MONONITRATE
     Indication: MYOCARDIAL ISCHAEMIA
     Dosage: 60 MG, QD
     Route: 048
     Dates: start: 20191105, end: 20191119
  50. BROWN MIXTURE                      /01682301/ [Concomitant]
     Indication: COUGH
     Dosage: 5 ML, TID
     Route: 048
     Dates: start: 20191105, end: 20191112
  51. CHLORPHENIRAMINE                   /00072501/ [Concomitant]
     Active Substance: CHLORPHENIRAMINE
     Dosage: 5 MG, SINGLE
     Route: 042
     Dates: start: 20191109, end: 20191109
  52. CHLORPHENIRAMINE                   /00072501/ [Concomitant]
     Active Substance: CHLORPHENIRAMINE
     Dosage: 10 MG, QD
     Route: 042
     Dates: start: 20191123, end: 20191123
  53. ZOPICLONE [Concomitant]
     Active Substance: ZOPICLONE
     Dosage: 7.5 MG, QD
     Route: 048
     Dates: start: 20191126, end: 20191211
  54. SOD BICARBONATE [Concomitant]
     Indication: END STAGE RENAL DISEASE
     Dosage: 60 ML, SINGLE
     Route: 042
     Dates: start: 20191116, end: 20191116
  55. SODIUM CHLORIDE. [Concomitant]
     Active Substance: SODIUM CHLORIDE
     Indication: PNEUMONIA
     Dosage: 5 ML, QID
     Route: 055
     Dates: start: 20191109, end: 20191204
  56. TIGECYCLINE. [Concomitant]
     Active Substance: TIGECYCLINE
     Indication: PNEUMONIA
     Dosage: 150 MG, QD
     Route: 042
     Dates: start: 20191113, end: 20191113
  57. QUETIAPINE. [Concomitant]
     Active Substance: QUETIAPINE
     Dosage: 25 MG, QD
     Route: 048
     Dates: start: 20191119, end: 20191126
  58. CONJUGATED ESTROGENS [Concomitant]
     Active Substance: ESTROGENS, CONJUGATED
     Indication: GASTRIC HAEMORRHAGE
     Dosage: 3.125 MG, QID
     Route: 048
     Dates: start: 20191119, end: 20191125
  59. FUSIDATE [Concomitant]
     Active Substance: FUSIDATE SODIUM
     Indication: PROPHYLAXIS
     Dosage: 1 G, BID
     Route: 061
     Dates: start: 20191120, end: 20191211
  60. BUMETANIDE. [Concomitant]
     Active Substance: BUMETANIDE
     Indication: CARDIAC FAILURE
     Dosage: 1 MG, BID
     Route: 048
     Dates: start: 20191129, end: 20191211
  61. CALCIUM POLYSTYRENE SULFONATE [Concomitant]
     Active Substance: CALCIUM POLYSTYRENE SULFONATE
     Dosage: 5 G, QD
     Route: 048
     Dates: start: 20191120, end: 20191121
  62. CEVIMELINE. [Concomitant]
     Active Substance: CEVIMELINE
     Indication: SJOGREN^S SYNDROME
     Dosage: 30 MG, QD
     Route: 048
     Dates: start: 20190924
  63. ESOMEPRAZOLE. [Concomitant]
     Active Substance: ESOMEPRAZOLE MAGNESIUM
     Dosage: 40 MG, BID
     Route: 042
     Dates: start: 20191118, end: 20191122
  64. ESOMEPRAZOLE. [Concomitant]
     Active Substance: ESOMEPRAZOLE MAGNESIUM
     Dosage: 40 MG, QD
     Route: 048
     Dates: start: 20191202, end: 20191211
  65. GLUCOSAMINE [Concomitant]
     Active Substance: GLUCOSAMINE
     Indication: ARTHRALGIA
     Dosage: 250 MG, BID
     Route: 048
     Dates: start: 20191015, end: 20191105
  66. PHYTOMENADIONE [Concomitant]
     Active Substance: PHYTONADIONE
     Indication: END STAGE RENAL DISEASE
     Dosage: 10 MG, QD
     Route: 042
     Dates: start: 20191024, end: 20191028
  67. MOMETASONE [Concomitant]
     Active Substance: MOMETASONE
     Indication: DERMATITIS BULLOUS
     Dosage: 50 ?G, QD
     Route: 045
     Dates: start: 20191030, end: 20191106
  68. SENNOSIDES A+B [Concomitant]
     Active Substance: SENNOSIDES A AND B
     Dosage: 20 MG, QD
     Route: 048
     Dates: start: 20191125, end: 20191127
  69. ATORVASTATIN [Concomitant]
     Active Substance: ATORVASTATIN
     Indication: MYOCARDIAL ISCHAEMIA
     Dosage: 10 MG, QD
     Route: 048
     Dates: start: 20191105, end: 20191211
  70. CEFIXIME. [Concomitant]
     Active Substance: CEFIXIME
     Indication: PNEUMONIA
     Dosage: 300 MG, QD
     Route: 048
     Dates: start: 20191105, end: 20191119
  71. CEFIXIME. [Concomitant]
     Active Substance: CEFIXIME
     Indication: CHOLECYSTITIS
  72. PROCHLORPERAZINE. [Concomitant]
     Active Substance: PROCHLORPERAZINE
     Indication: NAUSEA
     Dosage: 5 MG, SINGLE
     Route: 030
     Dates: start: 20191106, end: 20191106
  73. CHLORPHENIRAMINE                   /00072501/ [Concomitant]
     Active Substance: CHLORPHENIRAMINE
     Dosage: 5 MG, SINGLE
     Route: 042
     Dates: start: 20191111, end: 20191111
  74. TAZOCIN [Concomitant]
     Active Substance: PIPERACILLIN SODIUM\TAZOBACTAM SODIUM
     Indication: PNEUMONIA
     Dosage: 2.25 G, QID
     Route: 042
     Dates: start: 20191107, end: 20191108
  75. MIDAZOLAM HYDROCHLORIDE. [Concomitant]
     Active Substance: MIDAZOLAM HYDROCHLORIDE
     Indication: ENDOTRACHEAL INTUBATION
     Dosage: 10 MG, SINGLE
     Route: 042
     Dates: start: 20191108, end: 20191108
  76. TRANSAMIN [Concomitant]
     Active Substance: TRANEXAMIC ACID
     Dosage: 250 MG, BID
     Route: 048
     Dates: start: 20191128, end: 20191129
  77. MINOCYCLINE [Concomitant]
     Active Substance: MINOCYCLINE HYDROCHLORIDE
     Indication: PNEUMONIA
     Dosage: 200 MG, SINGLE
     Route: 048
     Dates: start: 20191112, end: 20191112
  78. INSULIN REGULAR                    /01223201/ [Concomitant]
     Active Substance: INSULIN BEEF
     Dosage: 4 IU, SINGLE
     Route: 042
     Dates: start: 20191117, end: 20191117
  79. DEXTROSE. [Concomitant]
     Active Substance: DEXTROSE
     Indication: SUPPLEMENTATION THERAPY
     Dosage: 80 ML, QD
     Route: 042
     Dates: start: 20191117, end: 20191118
  80. CALCIUM CARBONATE. [Concomitant]
     Active Substance: CALCIUM CARBONATE
     Indication: END STAGE RENAL DISEASE
     Dosage: 1000 MG, BID
     Route: 048
     Dates: start: 20191217
  81. RAVULIZUMAB. [Suspect]
     Active Substance: RAVULIZUMAB
     Indication: ATYPICAL HAEMOLYTIC URAEMIC SYNDROME
     Dosage: 2400 MG, UNK
     Route: 042
     Dates: start: 20171103
  82. BERODUAL [Concomitant]
     Active Substance: FENOTEROL HYDROBROMIDE\IPRATROPIUM BROMIDE
     Indication: COUGH
     Dosage: 1 PUFF, TID
     Route: 055
     Dates: start: 20190924, end: 20191119
  83. ACETAMINOPHEN. [Concomitant]
     Active Substance: ACETAMINOPHEN
     Indication: PNEUMONIA
     Dosage: 500 MG, QID (PRN)
     Route: 048
     Dates: start: 20191107, end: 20191107
  84. ESOMEPRAZOLE. [Concomitant]
     Active Substance: ESOMEPRAZOLE MAGNESIUM
     Dosage: 40 MG, BID
     Route: 042
     Dates: start: 20191109, end: 20191113
  85. ACETYLCYSTEINE. [Concomitant]
     Active Substance: ACETYLCYSTEINE
     Indication: COUGH
     Dosage: 200 MG, TID
     Route: 048
     Dates: start: 20191020, end: 20191105
  86. COMBIVENT [Concomitant]
     Active Substance: ALBUTEROL SULFATE\IPRATROPIUM BROMIDE
     Indication: PNEUMONIA
     Dosage: 2.5 ML, QID
     Route: 055
     Dates: start: 20191021, end: 20191029
  87. MIDODRINE [Concomitant]
     Active Substance: MIDODRINE
     Indication: END STAGE RENAL DISEASE
     Dosage: 20 MG, TIW
     Route: 048
     Dates: start: 20191023, end: 20191031
  88. SENNOSIDES A+B [Concomitant]
     Active Substance: SENNOSIDES A AND B
     Indication: PROPHYLAXIS
     Dosage: 40 MG, QD
     Route: 048
     Dates: start: 20191030, end: 20191031
  89. VALACICLOVIR [Concomitant]
     Active Substance: VALACYCLOVIR HYDROCHLORIDE
     Indication: DERMATITIS BULLOUS
     Dosage: 1000 MG, TID
     Route: 048
     Dates: start: 20191105, end: 20191108
  90. CHLORPHENIRAMINE                   /00072501/ [Concomitant]
     Active Substance: CHLORPHENIRAMINE
     Indication: PROPHYLAXIS
     Dosage: 5 MG, SINGLE
     Route: 042
     Dates: start: 20191107, end: 20191107
  91. SOD BICARBONATE [Concomitant]
     Indication: PNEUMONIA
     Dosage: 20 ML, SINGLE
     Route: 042
     Dates: start: 20191107, end: 20191107
  92. TEICOPLANIN [Concomitant]
     Active Substance: TEICOPLANIN
     Indication: PNEUMONIA
     Dosage: 1200 MG, QD
     Route: 042
     Dates: start: 20191108, end: 20191108
  93. MEROPENEM. [Concomitant]
     Active Substance: MEROPENEM
     Dosage: 500 MG, QD
     Route: 042
     Dates: start: 20191110, end: 20191112
  94. LORAZEPAM. [Concomitant]
     Active Substance: LORAZEPAM
     Indication: INSOMNIA
     Dosage: 0.5 MG, SINGLE
     Route: 048
     Dates: start: 20191122, end: 20191122
  95. ETOFENAMATE [Concomitant]
     Active Substance: ETOFENAMATE
     Indication: ARTHRALGIA
     Dosage: 1 G, TID
     Route: 061
     Dates: start: 20191203, end: 20191211
  96. MECOBALAMIN [Concomitant]
     Active Substance: METHYLCOBALAMIN
     Indication: END STAGE RENAL DISEASE
     Dosage: 500 ?G, TID
     Route: 048
     Dates: start: 20190515, end: 20191211
  97. MECOBALAMIN [Concomitant]
     Active Substance: METHYLCOBALAMIN
     Dosage: 500 MG, TID
     Route: 048
     Dates: start: 20191217
  98. EPOETIN BETA [Concomitant]
     Active Substance: ERYTHROPOIETIN
     Indication: END STAGE RENAL DISEASE
     Dosage: 2000 IU, TIW PRN
     Route: 042
     Dates: start: 20190624
  99. THEOPHYLLINE [Concomitant]
     Active Substance: THEOPHYLLINE ANHYDROUS
     Indication: COUGH
     Dosage: 200 MG, QD
     Route: 048
     Dates: start: 20190903, end: 20191119
  100. THEOPHYLLINE [Concomitant]
     Active Substance: THEOPHYLLINE ANHYDROUS
     Dosage: 200 MG, QD
     Route: 048
     Dates: start: 20191217
  101. ESOMEPRAZOLE. [Concomitant]
     Active Substance: ESOMEPRAZOLE MAGNESIUM
     Dosage: 40 MG, QD
     Route: 048
     Dates: start: 20191122, end: 20191130
  102. DIMETHICONE. [Concomitant]
     Active Substance: DIMETHICONE
     Indication: GASTRIC ULCER
     Dosage: 80 MG, QID
     Route: 048
     Dates: start: 20191021, end: 20191031
  103. DEXTROMETHORPHAN [Concomitant]
     Active Substance: DEXTROMETHORPHAN
     Indication: COUGH
     Dosage: 60 MG, QD
     Route: 048
     Dates: start: 20191021, end: 20191029
  104. CALCIUM ACETATE. [Concomitant]
     Active Substance: CALCIUM ACETATE
     Indication: END STAGE RENAL DISEASE
     Dosage: 2001 MG, TID
     Route: 048
     Dates: start: 20191022, end: 20191028
  105. TRIAMCINOLONE [Concomitant]
     Active Substance: TRIAMCINOLONE
     Indication: SJOGREN^S SYNDROME
     Dosage: 1 G, BID
     Route: 061
     Dates: start: 20191023, end: 20191108
  106. CODEINE PHOSPHATE [Concomitant]
     Active Substance: CODEINE PHOSPHATE
     Dosage: 60 MG, Q6H (PRN)
     Route: 048
     Dates: start: 20191217, end: 20191220
  107. DESMOPRESSIN ACETATE. [Concomitant]
     Active Substance: DESMOPRESSIN ACETATE
     Dosage: 12 ?G, SINGLE
     Route: 058
     Dates: start: 20191113, end: 20191113
  108. DESMOPRESSIN ACETATE. [Concomitant]
     Active Substance: DESMOPRESSIN ACETATE
     Dosage: 12 ?G, SINGLE
     Route: 042
     Dates: start: 20191116, end: 20191116
  109. MEROPENEM. [Concomitant]
     Active Substance: MEROPENEM
     Indication: PNEUMONIA
     Dosage: 1000 MG, BID
     Route: 042
     Dates: start: 20191108, end: 20191108
  110. VITAMIN B1 [Concomitant]
     Active Substance: THIAMINE HYDROCHLORIDE
     Indication: CARDIAC FAILURE
     Dosage: 100 MG, QD
     Route: 042
     Dates: start: 20191109, end: 20191109
  111. VITAMIN B1 [Concomitant]
     Active Substance: THIAMINE HYDROCHLORIDE
     Dosage: 100 MG, QD
     Route: 042
     Dates: start: 20191120, end: 20191120
  112. VITAMIN C [Concomitant]
     Active Substance: ASCORBIC ACID
     Dosage: 200 MG, QD
     Route: 042
     Dates: start: 20191119, end: 20191119
  113. HALOPERIDOL. [Concomitant]
     Active Substance: HALOPERIDOL
     Indication: DELIRIUM
     Dosage: 2.5 MG, SINGLE
     Route: 030
     Dates: start: 20191114, end: 20191114
  114. DEXTROSE. [Concomitant]
     Active Substance: DEXTROSE
     Dosage: 80 ML, QID
     Route: 042
     Dates: start: 20191119, end: 20191122
  115. CLOBETASOL [Concomitant]
     Active Substance: CLOBETASOL
     Indication: PRURITUS
     Dosage: 1 G, BID
     Route: 061
     Dates: start: 20191125, end: 20191211
  116. BENAZON [Concomitant]
     Indication: HAEMORRHOIDS
     Dosage: 1 G, BID
     Route: 061
     Dates: start: 20191125, end: 20191211
  117. BROMHEXINE [Concomitant]
     Active Substance: BROMHEXINE
     Indication: PNEUMONIA
     Dosage: 4 ML, BID
     Route: 055
     Dates: start: 20191129, end: 20191203
  118. FEXOFENADINE [Concomitant]
     Active Substance: FEXOFENADINE HYDROCHLORIDE
     Dosage: 60 MG, QD
     Route: 048
     Dates: start: 20191201, end: 20191211
  119. FEXOFENADINE [Concomitant]
     Active Substance: FEXOFENADINE HYDROCHLORIDE
     Dosage: 60 MG, QD
     Route: 048
     Dates: start: 20191217
  120. SULTAMICILLIN [Concomitant]
     Active Substance: SULTAMICILLIN
     Indication: PNEUMONIA
     Dosage: 375 MG, TIW
     Route: 048
     Dates: start: 20191202, end: 20191211
  121. MEDICON A [Concomitant]
     Active Substance: DEXTROMETHORPHAN HYDROBROMIDE\LYSOZYME HYDROCHLORIDE\POTASSIUM CRESOLSULFONATE
     Indication: COUGH
     Dosage: 1 UNK, TID
     Route: 048
     Dates: start: 20191217
  122. ACETAMINOPHEN. [Concomitant]
     Active Substance: ACETAMINOPHEN
     Indication: HEADACHE
     Dosage: 500 MG, Q6H
     Route: 048
     Dates: start: 20190924, end: 20191104
  123. ACETAMINOPHEN. [Concomitant]
     Active Substance: ACETAMINOPHEN
     Dosage: 500 MG, QID
     Route: 048
     Dates: start: 20191120, end: 20191121
  124. DOXAZOSIN [Concomitant]
     Active Substance: DOXAZOSIN MESYLATE
     Dosage: 4 MG, QD
     Route: 048
     Dates: start: 20191029, end: 20191107
  125. DOXAZOSIN [Concomitant]
     Active Substance: DOXAZOSIN MESYLATE
     Dosage: 2 MG, BID
     Route: 048
     Dates: start: 20191113, end: 20191211
  126. ACETYLCYSTEINE. [Concomitant]
     Active Substance: ACETYLCYSTEINE
     Dosage: 600 MG, BID
     Route: 048
     Dates: start: 20191107, end: 20191216
  127. SENNOSIDES A+B [Concomitant]
     Active Substance: SENNOSIDES A AND B
     Dosage: 20 MG, QD
     Route: 048
     Dates: start: 20191203, end: 20191211
  128. CHLORPHENIRAMINE                   /00072501/ [Concomitant]
     Active Substance: CHLORPHENIRAMINE
     Indication: PRURITUS
     Dosage: 5 MG, SINGLE
     Route: 030
     Dates: start: 20191106, end: 20191106
  129. CHLORPHENIRAMINE                   /00072501/ [Concomitant]
     Active Substance: CHLORPHENIRAMINE
     Dosage: 5 MG, PRN
     Route: 042
     Dates: start: 20191217, end: 20191218
  130. FEBUXOSTAT. [Concomitant]
     Active Substance: FEBUXOSTAT
     Indication: ARTHRALGIA
     Dosage: 40 MG, QD
     Route: 048
     Dates: start: 20191107, end: 20191107
  131. MINOCYCLINE [Concomitant]
     Active Substance: MINOCYCLINE HYDROCHLORIDE
     Dosage: 100 MG, BID
     Route: 048
     Dates: start: 20191113, end: 20191113
  132. TELMISARTAN. [Concomitant]
     Active Substance: TELMISARTAN
     Dosage: 80 MG, QD
     Route: 048
     Dates: start: 20191128, end: 20191211
  133. DARBEPOETIN ALFA [Concomitant]
     Active Substance: DARBEPOETIN ALFA
     Indication: END STAGE RENAL DISEASE
     Dosage: 20 ?G, QW
     Route: 058
     Dates: start: 20191115, end: 20191129
  134. RISPERIDONE. [Concomitant]
     Active Substance: RISPERIDONE
     Indication: DELIRIUM
     Dosage: 1 MG, QD
     Route: 048
     Dates: start: 20191115, end: 20191120
  135. RISPERIDONE. [Concomitant]
     Active Substance: RISPERIDONE
     Dosage: 0.5 MG, BID
     Route: 048
     Dates: start: 20191121, end: 20191121
  136. INSULIN REGULAR                    /01223201/ [Concomitant]
     Active Substance: INSULIN BEEF
     Indication: END STAGE RENAL DISEASE
     Dosage: 8 IU, SINGLE
     Route: 058
     Dates: start: 20191116, end: 20191116
  137. SALBUTAMOL [Concomitant]
     Active Substance: ALBUTEROL
     Indication: PNEUMONIA
     Dosage: 5 MG, SINGLE
     Route: 055
     Dates: start: 20191117, end: 20191117
  138. FEXOFENADINE [Concomitant]
     Active Substance: FEXOFENADINE HYDROCHLORIDE
     Indication: PRURITUS
     Dosage: 120 MG, QD
     Route: 048
     Dates: start: 20191130, end: 20191130
  139. BENIDIPINE [Concomitant]
     Active Substance: BENIDIPINE
     Dosage: 10 MG, QD
     Route: 048
     Dates: start: 20191112, end: 20191112
  140. CALCIUM POLYSTYRENE SULFONATE [Concomitant]
     Active Substance: CALCIUM POLYSTYRENE SULFONATE
     Indication: END STAGE RENAL DISEASE
     Dosage: 5 G, QD
     Route: 048
     Dates: start: 20190903, end: 20191115
  141. CALCIUM POLYSTYRENE SULFONATE [Concomitant]
     Active Substance: CALCIUM POLYSTYRENE SULFONATE
     Dosage: 10 G, TID
     Route: 048
     Dates: start: 20191116, end: 20191119
  142. CALCIUM POLYSTYRENE SULFONATE [Concomitant]
     Active Substance: CALCIUM POLYSTYRENE SULFONATE
     Dosage: 5 G, QD
     Route: 048
     Dates: start: 20191203, end: 20191211
  143. HYDRALAZINE [Concomitant]
     Active Substance: HYDRALAZINE HYDROCHLORIDE
     Indication: HYPERTENSION
     Dosage: 25 MG, TID
     Route: 048
     Dates: start: 20190903, end: 20191119
  144. HYDRALAZINE [Concomitant]
     Active Substance: HYDRALAZINE HYDROCHLORIDE
     Dosage: 50 MG, QID
     Route: 048
     Dates: start: 20191125, end: 20191211
  145. ACETAMINOPHEN. [Concomitant]
     Active Substance: ACETAMINOPHEN
     Indication: DERMATITIS BULLOUS
     Dosage: 500 MG, TID
     Route: 048
     Dates: start: 20191105, end: 20191106
  146. ACETAMINOPHEN. [Concomitant]
     Active Substance: ACETAMINOPHEN
     Dosage: 500 MG, Q6H (PRN)
     Route: 048
     Dates: start: 20191108, end: 20191119
  147. ESOMEPRAZOLE. [Concomitant]
     Active Substance: ESOMEPRAZOLE MAGNESIUM
     Indication: GASTRIC ULCER
     Dosage: 40 MG, QD
     Route: 048
     Dates: start: 20191015
  148. ESOMEPRAZOLE. [Concomitant]
     Active Substance: ESOMEPRAZOLE MAGNESIUM
     Dosage: 40 MG, QID
     Route: 042
     Dates: start: 20191114, end: 20191117
  149. ESOMEPRAZOLE. [Concomitant]
     Active Substance: ESOMEPRAZOLE MAGNESIUM
     Dosage: 40 MG, QID
     Route: 042
     Dates: start: 20191130, end: 20191202
  150. ULTRACET [Concomitant]
     Active Substance: ACETAMINOPHEN\TRAMADOL HYDROCHLORIDE
     Indication: HEADACHE
     Dosage: UNK, Q6H
     Route: 048
     Dates: start: 20191217
  151. CEFUROXIME. [Concomitant]
     Active Substance: CEFUROXIME
     Indication: CHOLECYSTITIS
     Dosage: 500 MG, TIW
     Route: 048
     Dates: start: 20191031, end: 20191106
  152. CHLORPHENIRAMINE                   /00072501/ [Concomitant]
     Active Substance: CHLORPHENIRAMINE
     Dosage: 5 MG, QD
     Route: 042
     Dates: start: 20191113, end: 20191120
  153. EPINEPHRINE. [Concomitant]
     Active Substance: EPINEPHRINE
     Indication: EPISTAXIS
     Dosage: 2 MG, TID (PRN)
     Route: 061
     Dates: start: 20191107, end: 20191108
  154. NIFEDIPINE. [Concomitant]
     Active Substance: NIFEDIPINE
     Indication: HYPERTENSION
     Dosage: 30 MG, SINGLE
     Route: 048
     Dates: start: 20191107, end: 20191107
  155. LABETALOL [Concomitant]
     Active Substance: LABETALOL\LABETALOL HYDROCHLORIDE
     Indication: HYPERTENSION
     Dosage: 5 MG, SINGLE
     Route: 042
     Dates: start: 20191107, end: 20191107
  156. LABETALOL [Concomitant]
     Active Substance: LABETALOL\LABETALOL HYDROCHLORIDE
     Dosage: 2.5 MG, Q6H (PRN)
     Route: 042
     Dates: start: 20191118, end: 20191122
  157. ACYCLOVIR                          /00587301/ [Concomitant]
     Active Substance: ACYCLOVIR
     Indication: DERMATITIS BULLOUS
     Dosage: 250 MG, TIW
     Route: 042
     Dates: start: 20191108, end: 20191118
  158. DESMOPRESSIN ACETATE. [Concomitant]
     Active Substance: DESMOPRESSIN ACETATE
     Indication: END STAGE RENAL DISEASE
     Dosage: 16 ?G, SINGLE
     Route: 042
     Dates: start: 20191108, end: 20191108
  159. VANCOMYCIN [Concomitant]
     Active Substance: VANCOMYCIN
     Dosage: 500 MG, TIW
     Route: 042
     Dates: start: 20191110, end: 20191113
  160. VITAMIN C [Concomitant]
     Active Substance: ASCORBIC ACID
     Indication: ANAEMIA
     Dosage: 100 MG, QD
     Route: 042
     Dates: start: 20191110, end: 20191118
  161. CEFTAZIDIME. [Concomitant]
     Active Substance: CEFTAZIDIME
     Indication: PNEUMONIA
     Dosage: 2000 MG, QD
     Route: 042
     Dates: start: 20191112, end: 20191112
  162. TIGECYCLINE. [Concomitant]
     Active Substance: TIGECYCLINE
     Dosage: 50 MG, BID
     Route: 042
     Dates: start: 20191114, end: 20191127
  163. QUETIAPINE. [Concomitant]
     Active Substance: QUETIAPINE
     Indication: DELIRIUM
     Dosage: 12.5 MG, QD
     Route: 048
     Dates: start: 20191114, end: 20191115
  164. HEPARIN [Concomitant]
     Active Substance: HEPARIN SODIUM
     Indication: PROPHYLAXIS
     Dosage: 25000 UT, SINGLE
     Route: 042
     Dates: start: 20191120, end: 20191120

REACTIONS (1)
  - Vascular access complication [Recovered/Resolved]

NARRATIVE: CASE EVENT DATE: 20191225
